FAERS Safety Report 5034245-7 (Version None)
Quarter: 2006Q2

REPORT INFORMATION
  Report Type: 
  Country: None (occurrence: None)
  Receive Date: 20060626
  Receipt Date: 20060508
  Transmission Date: 20061013
  Serious: Yes (Death, Life-Threatening)
  Sender: FDA-Public Use
  Company Number: PHBS2006JP06851

PATIENT
  Age: 76 Year
  Sex: Male
  Weight: 60 kg

DRUGS (11)
  1. PREDONINE [Suspect]
     Indication: GLOMERULONEPHRITIS
     Dosage: 10 MG/DAY
     Route: 048
     Dates: start: 20060106, end: 20060217
  2. PREDONINE [Suspect]
     Dosage: 30 MG/DAY
     Route: 048
     Dates: start: 20060218, end: 20060225
  3. PREDONINE [Suspect]
     Dosage: 60 MG/DAY
     Route: 048
     Dates: start: 20060226, end: 20060311
  4. PREDONINE [Suspect]
     Dosage: 40 MG/DAY
     Route: 048
     Dates: start: 20060312, end: 20060405
  5. SOLU-MEDROL [Suspect]
     Indication: GLOMERULONEPHRITIS
     Dosage: 500 MG/DAY
     Route: 041
     Dates: start: 20060406, end: 20060408
  6. SOLU-MEDROL [Suspect]
     Dosage: 60 MG/DAY
     Route: 041
     Dates: start: 20060409
  7. TEGRETOL [Suspect]
     Indication: PAIN IN EXTREMITY
     Dosage: 400 MG/DAY
     Route: 048
     Dates: start: 20060228, end: 20060330
  8. GASTER [Suspect]
     Indication: GASTRITIS
     Dosage: 20 MG/DAY
     Route: 048
     Dates: start: 20060106, end: 20060317
  9. ADRENAL HORMONE PREPARATIONS [Concomitant]
     Indication: GLOMERULONEPHRITIS
     Route: 048
  10. TRYPTANOL [Concomitant]
     Indication: PAIN IN EXTREMITY
     Dosage: 50 MG/DAY
     Route: 048
     Dates: start: 20060228, end: 20060330
  11. ENDOXAN [Suspect]
     Indication: GLOMERULONEPHRITIS
     Dosage: 50 MG/DAY
     Route: 048
     Dates: start: 20060217, end: 20060328

REACTIONS (7)
  - APLASTIC ANAEMIA [None]
  - HAEMATOCRIT DECREASED [None]
  - PANCYTOPENIA [None]
  - PLATELET COUNT DECREASED [None]
  - PNEUMONIA [None]
  - RESPIRATORY FAILURE [None]
  - WHITE BLOOD CELL COUNT DECREASED [None]
